FAERS Safety Report 6655756-4 (Version None)
Quarter: 2010Q1

REPORT INFORMATION
  Report Type: 
  Country: None (occurrence: None)
  Receive Date: 20100329
  Receipt Date: 20100324
  Transmission Date: 20100710
  Serious: Yes (Hospitalization)
  Sender: FDA-Public Use
  Company Number: AU-ROCHE-688655

PATIENT
  Sex: Male
  Weight: 62.5 kg

DRUGS (16)
  1. TOCILIZUMAB [Suspect]
     Indication: RHEUMATOID ARTHRITIS
     Dosage: DRUG TEMPORARILY STOPPED ON 02 JULY 2008
     Route: 042
     Dates: start: 20060814, end: 20080519
  2. TOCILIZUMAB [Suspect]
     Route: 042
     Dates: start: 20080811
  3. TOCILIZUMAB [Suspect]
     Dosage: LAST DOSE PRIOR TO SAE 02 FEBRUARY 2010. TEMPORARILY INTERRUPTED.
     Route: 042
     Dates: end: 20100301
  4. TOCILIZUMAB [Suspect]
     Dosage: THE PATIENT WAS PREVIOUSLY ENROLLED IN WA18063
     Route: 042
  5. DICLOFENAC [Concomitant]
     Dates: start: 20080612
  6. DICLOFENAC [Concomitant]
     Dosage: FREQUENCY REPORTED AS DAILY.
     Dates: end: 20100305
  7. SULFASALAZINE [Concomitant]
     Dosage: FREQUENCY REPORTED AS DAILY.
     Dates: start: 20060702
  8. SULFASALAZINE [Concomitant]
     Dosage: FREQUENCY REPORTED AS DAILY.
     Dates: start: 20070702
  9. METHYLDOPA [Concomitant]
     Dosage: FREQUENCY REPORTED AS DAILY.
     Dates: start: 20100118, end: 20100305
  10. METHYLDOPA [Concomitant]
     Dosage: FREQUENCY REPORTED AS DAILY.
     Dates: start: 20100118, end: 20100305
  11. METHYLDOPA [Concomitant]
     Dosage: FREQUENCY REPORTEDAS DAILY.
     Dates: start: 20100309
  12. ATACAND HCT [Concomitant]
  13. ATACAND HCT [Concomitant]
     Dosage: FREQUENCY REPORTED AS DAILY
  14. OMEPRAZOLE [Concomitant]
  15. ZOLEDRONIC ACID [Concomitant]
     Dosage: TDD REPORTED AS: 4 MGS YRLY.
  16. AMLODIPINE [Concomitant]

REACTIONS (3)
  - LUMBAR RADICULOPATHY [None]
  - SINUSITIS FUNGAL [None]
  - STREPTOCOCCAL INFECTION [None]
